FAERS Safety Report 7919937-1 (Version None)
Quarter: 2011Q4

REPORT INFORMATION
  Report Type: 
  Country: None (occurrence: None)
  Receive Date: 20111117
  Receipt Date: 20111108
  Transmission Date: 20120403
  Serious: Yes (Hospitalization, Other)
  Sender: FDA-Public Use
  Company Number: CA-JNJFOC-20111103674

PATIENT
  Age: 72 Year
  Sex: Female
  Weight: 69.8 kg

DRUGS (2)
  1. REMICADE [Suspect]
     Indication: ANKYLOSING SPONDYLITIS
     Route: 042
  2. COUMADIN [Suspect]
     Indication: INFARCTION
     Dosage: DOSE ADJUSTED PER INR
     Route: 048
     Dates: start: 20110601

REACTIONS (1)
  - RECTAL HAEMORRHAGE [None]
